FAERS Safety Report 6659762-5 (Version None)
Quarter: 2010Q1

REPORT INFORMATION
  Report Type: 
  Country: None (occurrence: None)
  Receive Date: 20100330
  Receipt Date: 20100319
  Transmission Date: 20100710
  Serious: Yes (Death, Hospitalization, Other)
  Sender: FDA-Public Use
  Company Number: FR-MERCK-1003FRA00045

PATIENT
  Age: 79 Year
  Sex: Male
  Weight: 68 kg

DRUGS (10)
  1. JANUVIA [Suspect]
     Indication: TYPE 2 DIABETES MELLITUS
     Route: 048
     Dates: start: 20100119, end: 20100201
  2. AMAREL [Suspect]
     Indication: TYPE 2 DIABETES MELLITUS
     Route: 048
     Dates: end: 20100201
  3. KARDEGIC [Concomitant]
     Indication: CORONARY ARTERIAL STENT INSERTION
     Route: 048
  4. IRBESARTAN [Suspect]
     Indication: HYPERTENSION
     Route: 048
     Dates: end: 20100201
  5. TAHOR [Suspect]
     Indication: PROPHYLAXIS
     Route: 048
     Dates: end: 20100201
  6. DIFFU-K [Concomitant]
     Route: 048
  7. AMLODIPINE BESYLATE [Concomitant]
     Indication: HYPERTENSION
     Route: 048
  8. PREDNISOLONE SODIUM METAZOATE [Suspect]
     Route: 048
     Dates: start: 20100123, end: 20100127
  9. SODIUM CHLORIDE [Concomitant]
     Indication: HYPONATRAEMIA
     Route: 048
     Dates: start: 20100123
  10. PANTOPRAZOLE SODIUM [Concomitant]
     Indication: PROPHYLAXIS AGAINST GASTROINTESTINAL ULCER
     Route: 048

REACTIONS (30)
  - ATRIAL FIBRILLATION [None]
  - BLOOD PH DECREASED [None]
  - BRADYPNOEA [None]
  - BRAIN DEATH [None]
  - BUNDLE BRANCH BLOCK LEFT [None]
  - CARDIO-RESPIRATORY ARREST [None]
  - CARDIOMEGALY [None]
  - CEREBELLAR SYNDROME [None]
  - CEREBRAL VENTRICLE DILATATION [None]
  - DIABETIC HYPEROSMOLAR COMA [None]
  - DIALYSIS [None]
  - ELECTROPHORESIS PROTEIN ABNORMAL [None]
  - GENERAL PHYSICAL HEALTH DETERIORATION [None]
  - HAEMOGLOBIN DECREASED [None]
  - HYPERKALAEMIA [None]
  - HYPONATRAEMIA [None]
  - HYPOTENSION [None]
  - ISCHAEMIC STROKE [None]
  - MEMORY IMPAIRMENT [None]
  - OXYGEN SATURATION DECREASED [None]
  - PCO2 DECREASED [None]
  - PLATELET COUNT DECREASED [None]
  - PO2 INCREASED [None]
  - PROTHROMBIN TIME PROLONGED [None]
  - RENAL FAILURE ACUTE [None]
  - RHABDOMYOLYSIS [None]
  - SUPRAVENTRICULAR EXTRASYSTOLES [None]
  - TACHYARRHYTHMIA [None]
  - TRANSIENT ISCHAEMIC ATTACK [None]
  - VENTRICULAR EXTRASYSTOLES [None]
